FAERS Safety Report 5402503-X (Version None)
Quarter: 2007Q3

REPORT INFORMATION
  Report Type: 
  Country: None (occurrence: None)
  Receive Date: 20070801
  Receipt Date: 20060824
  Transmission Date: 20080115
  Serious: No
  Sender: FDA-Public Use
  Company Number: A0618019A

PATIENT
  Age: 38 Year
  Sex: Female

DRUGS (2)
  1. IMITREX [Suspect]
     Indication: MIGRAINE
     Route: 048
  2. WELLBUTRIN [Suspect]
     Route: 048
     Dates: start: 19980101

REACTIONS (4)
  - DRUG INEFFECTIVE [None]
  - HYPERTENSION [None]
  - RASH [None]
  - URTICARIA [None]
